FAERS Safety Report 14012682 (Version 2)
Quarter: 2017Q4

REPORT INFORMATION
  Report Type: Spontaneous
  Country: CH (occurrence: CH)
  Receive Date: 20170926
  Receipt Date: 20171004
  Transmission Date: 20180321
  Serious: Yes (Other)
  Sender: FDA-Public Use
  Company Number: CH-LPDUSPRD-20171317

PATIENT
  Sex: Female

DRUGS (1)
  1. FERINJECT [Suspect]
     Active Substance: FERRIC CARBOXYMALTOSE
     Dosage: 3 AMPOULES OF 100 MG (300 MG)
     Route: 065

REACTIONS (5)
  - Palpitations [Unknown]
  - Hypotension [Unknown]
  - Chest discomfort [Unknown]
  - Malaise [Unknown]
  - Tachycardia [Unknown]
